FAERS Safety Report 10050259 (Version 3)
Quarter: 2014Q2

REPORT INFORMATION
  Report Type: Spontaneous
  Country: ZA (occurrence: ZA)
  Receive Date: 20140401
  Receipt Date: 20140429
  Transmission Date: 20141212
  Serious: Yes (Death, Hospitalization)
  Sender: FDA-Public Use
  Company Number: ZA-TEVA-472527USA

PATIENT
  Sex: Female

DRUGS (1)
  1. RIBOMUSTIN [Suspect]
     Indication: NON-HODGKIN^S LYMPHOMA UNSPECIFIED HISTOLOGY INDOLENT
     Dosage: 1ST CYCLE 3 WEEKS AGO; CYCLIC
     Route: 065

REACTIONS (3)
  - Disease progression [Fatal]
  - Asthma [Not Recovered/Not Resolved]
  - Infection [Unknown]
